FAERS Safety Report 5195515-5 (Version None)
Quarter: 2007Q1

REPORT INFORMATION
  Report Type: 
  Country: None (occurrence: None)
  Receive Date: 20070102
  Receipt Date: 20061228
  Transmission Date: 20070707
  Serious: Yes (Hospitalization)
  Sender: FDA-Public Use
  Company Number: CH-JNJFOC-20061206029

PATIENT
  Age: 71 Year
  Sex: Male

DRUGS (8)
  1. DURAGESIC-100 [Suspect]
     Indication: DRUG USE FOR UNKNOWN INDICATION
     Route: 062
  2. TRAMADOL HCL [Suspect]
     Indication: DRUG USE FOR UNKNOWN INDICATION
     Route: 048
  3. COZAAR [Concomitant]
     Route: 048
  4. ASPIRIN [Concomitant]
     Route: 048
  5. TORSEMIDE [Concomitant]
     Route: 048
  6. PROPECIA [Concomitant]
     Route: 048
  7. LOPRESSOR [Concomitant]
     Route: 048
  8. EZETROL [Concomitant]
     Route: 048

REACTIONS (5)
  - ALCOHOL USE [None]
  - CONFUSIONAL STATE [None]
  - DRUG TOXICITY [None]
  - INTENTIONAL OVERDOSE [None]
  - MEDICATION ERROR [None]
